FAERS Safety Report 8284961-9 (Version None)
Quarter: 2012Q2

REPORT INFORMATION
  Report Type: 
  Country: None (occurrence: None)
  Receive Date: 20120413
  Receipt Date: 20111116
  Transmission Date: 20120825
  Serious: No
  Sender: FDA-Public Use
  Company Number: US-ASTRAZENECA-2011SE68988

PATIENT

DRUGS (7)
  1. LIPITOR [Concomitant]
  2. CLONAZEPAM [Concomitant]
  3. NEXIUM [Suspect]
     Route: 048
  4. LISINOPRIL [Suspect]
     Route: 048
  5. CYMBALTA [Concomitant]
  6. TAMSULOSIN HYDROCHLORIDE [Concomitant]
  7. ADVAIR DISKUS 100/50 [Concomitant]

REACTIONS (4)
  - WEIGHT DECREASED [None]
  - APHAGIA [None]
  - VOMITING [None]
  - DRUG DOSE OMISSION [None]
